FAERS Safety Report 11303010 (Version 1)
Quarter: 2015Q3

REPORT INFORMATION
  Report Type: Spontaneous
  Country: US (occurrence: None)
  Receive Date: 20150723
  Receipt Date: 20150723
  Transmission Date: 20151125
  Serious: Yes (Hospitalization)
  Sender: FDA-Public Use
  Company Number: None

PATIENT
  Age: 1 Month
  Sex: Female
  Weight: 5.3 kg

DRUGS (1)
  1. DIAZOXIDE [Suspect]
     Active Substance: DIAZOXIDE
     Indication: HYPERINSULINISM
     Route: 042
     Dates: start: 20141108, end: 20141203

REACTIONS (2)
  - Acute respiratory distress syndrome [None]
  - Pulmonary hypertension [None]

NARRATIVE: CASE EVENT DATE: 20141206
